FAERS Safety Report 4883318-8 (Version None)
Quarter: 2006Q1

REPORT INFORMATION
  Report Type: 
  Country: None (occurrence: None)
  Receive Date: 20060118
  Receipt Date: 20060110
  Transmission Date: 20060701
  Serious: Yes (Other)
  Sender: FDA-Public Use
  Company Number: 4877108

PATIENT
  Sex: Female

DRUGS (1)
  1. PAXIL [Suspect]
     Indication: ANXIETY
     Route: 048

REACTIONS (5)
  - ABNORMAL BEHAVIOUR [None]
  - CRYING [None]
  - DEPRESSION [None]
  - LAZINESS [None]
  - SUICIDAL IDEATION [None]
